FAERS Safety Report 4519325-4 (Version None)
Quarter: 2004Q4

REPORT INFORMATION
  Report Type: 
  Country: None (occurrence: None)
  Receive Date: 20041206
  Receipt Date: 20041129
  Transmission Date: 20050328
  Serious: Yes (Other)
  Sender: FDA-Public Use
  Company Number: NL-GLAXOSMITHKLINE-B0358860A

PATIENT
  Age: 70 Year
  Sex: Male

DRUGS (4)
  1. AMOXICILLIN AND CLAVULANATE POTASSIUM [Suspect]
     Indication: EPIDIDYMITIS
     Dosage: 625MG THREE TIMES PER DAY
     Route: 048
     Dates: start: 20040913, end: 20040920
  2. PIROXICAM [Concomitant]
     Dosage: 25MG PER DAY
     Route: 048
  3. ZOPICLON [Concomitant]
     Dosage: 7.5MG PER DAY
     Route: 048
  4. METHOTREXATE [Concomitant]
     Dosage: 10MG WEEKLY
     Route: 048

REACTIONS (1)
  - RHEUMATOID ARTHRITIS [None]
